FAERS Safety Report 17731510 (Version 1)
Quarter: 2020Q2

REPORT INFORMATION
  Report Type: Report from Study
  Country: NL (occurrence: NL)
  Receive Date: 20200430
  Receipt Date: 20200430
  Transmission Date: 20200714
  Serious: Yes (Other)
  Sender: FDA-Public Use
  Company Number: NL-TEVA-2020-NL-1228132

PATIENT
  Age: 55 Year
  Sex: Female

DRUGS (1)
  1. NAPROXEN. [Suspect]
     Active Substance: NAPROXEN
     Indication: PSORIATIC ARTHROPATHY
     Dosage: 500MG, 2X/D,
     Dates: start: 20140905, end: 20160125

REACTIONS (2)
  - Retinopathy [Unknown]
  - Hypertension [Unknown]

NARRATIVE: CASE EVENT DATE: 20160101
